FAERS Safety Report 5099794-4 (Version None)
Quarter: 2006Q3

REPORT INFORMATION
  Report Type: 
  Country: None (occurrence: None)
  Receive Date: 20060906
  Receipt Date: 20060823
  Transmission Date: 20061208
  Serious: Yes (Death, Other)
  Sender: FDA-Public Use
  Company Number: 2006066787

PATIENT
  Age: 73 Year
  Sex: Male
  Weight: 75 kg

DRUGS (8)
  1. INSPRA [Suspect]
     Indication: CARDIAC FAILURE
     Dosage: UNKNOWN (DAILY); ORAL, 50 MG (DAILY); ORAL
     Route: 048
     Dates: start: 20050101, end: 20050401
  2. INSPRA [Suspect]
     Indication: CARDIAC FAILURE
     Dosage: UNKNOWN (DAILY); ORAL, 50 MG (DAILY); ORAL
     Route: 048
     Dates: start: 20050401, end: 20060602
  3. BISOPROLOL FUMARATE [Concomitant]
  4. TOREM (TORASEMIDE) [Concomitant]
  5. MARCUMAR [Concomitant]
  6. ALLOPURINOL [Concomitant]
  7. SIMVASTATIN [Concomitant]
  8. DIGITOXIN TAB [Concomitant]

REACTIONS (10)
  - CARDIAC FAILURE [None]
  - CONDITION AGGRAVATED [None]
  - DIALYSIS [None]
  - DIZZINESS [None]
  - LEUKOCYTOSIS [None]
  - LYMPHOPENIA [None]
  - NEUTROPHIL COUNT INCREASED [None]
  - PNEUMONIA [None]
  - RENAL FAILURE ACUTE [None]
  - SEPTIC SHOCK [None]
